FAERS Safety Report 13111654 (Version 2)
Quarter: 2019Q1

REPORT INFORMATION
  Report Type: Spontaneous
  Country: FR (occurrence: FR)
  Receive Date: 20170112
  Receipt Date: 20190307
  Transmission Date: 20190417
  Serious: Yes (Hospitalization)
  Sender: FDA-Public Use
  Company Number: FR-MYLANLABS-16X-056-1263606-00

PATIENT
  Sex: Female

DRUGS (4)
  1. MELATONINE [Suspect]
     Active Substance: MELATONIN
     Indication: INSOMNIA
     Dosage: UNK
     Route: 048
     Dates: start: 201607
  2. MESTINON [Interacting]
     Active Substance: PYRIDOSTIGMINE BROMIDE
     Indication: CONSTIPATION
     Dosage: UNK
     Route: 048
     Dates: start: 201607
  3. ATROPINE. [Concomitant]
     Active Substance: ATROPINE
     Indication: HEART RATE ABNORMAL
     Dosage: 1 MILLIGRAM
  4. ISOPTINE 120 MG [Suspect]
     Active Substance: VERAPAMIL HYDROCHLORIDE
     Indication: CLUSTER HEADACHE
     Dosage: 720MILLIGRAMTID
     Route: 048
     Dates: end: 20160714

REACTIONS (12)
  - Palpitations [Recovered/Resolved]
  - Vomiting [Recovered/Resolved]
  - Resting tremor [Unknown]
  - Hypotension [Recovered/Resolved]
  - Malaise [Recovered/Resolved]
  - Hot flush [Recovered/Resolved]
  - Headache [Unknown]
  - Atrioventricular block [Recovered/Resolved]
  - Oedema peripheral [Recovered/Resolved]
  - Asthenia [Recovered/Resolved]
  - Dyspnoea [Recovered/Resolved]
  - Drug interaction [Recovered/Resolved]

NARRATIVE: CASE EVENT DATE: 201607
